FAERS Safety Report 5407906-5 (Version None)
Quarter: 2007Q3

REPORT INFORMATION
  Report Type: 
  Country: None (occurrence: None)
  Receive Date: 20070803
  Receipt Date: 20070730
  Transmission Date: 20080115
  Serious: Yes (Death, Life-Threatening, Hospitalization)
  Sender: FDA-Public Use
  Company Number: CLOF-10615

PATIENT
  Age: 39 Year
  Sex: Male

DRUGS (3)
  1. CLOFARABINE. MFR: GENZYME [Suspect]
     Indication: BONE MARROW CONDITIONING REGIMEN
     Dates: start: 20070101, end: 20070101
  2. MELPHALAN [Suspect]
     Indication: BONE MARROW CONDITIONING REGIMEN
     Dates: start: 20070101, end: 20070101
  3. THIOTEPA [Suspect]
     Indication: BONE MARROW CONDITIONING REGIMEN
     Dates: start: 20070101, end: 20070101

REACTIONS (10)
  - CATHETER SEPSIS [None]
  - DIARRHOEA [None]
  - DISEASE PROGRESSION [None]
  - GENERAL PHYSICAL HEALTH DETERIORATION [None]
  - HAEMOPTYSIS [None]
  - HALLUCINATION [None]
  - LOWER GASTROINTESTINAL HAEMORRHAGE [None]
  - MUCOSAL INFLAMMATION [None]
  - RENAL FAILURE ACUTE [None]
  - VENOOCCLUSIVE DISEASE [None]
